FAERS Safety Report 11217592 (Version 1)
Quarter: 2015Q2

REPORT INFORMATION
  Report Type: Spontaneous
  Country: JP (occurrence: JP)
  Receive Date: 20150625
  Receipt Date: 20150625
  Transmission Date: 20150821
  Serious: Yes (Other)
  Sender: FDA-Public Use
  Company Number: PHJP2015JP010193

PATIENT

DRUGS (1)
  1. NEORAL [Suspect]
     Active Substance: CYCLOSPORINE
     Indication: MYASTHENIA GRAVIS
     Dosage: 120 MG, QD
     Route: 048

REACTIONS (3)
  - Off label use [Unknown]
  - Immunosuppressant drug level increased [Unknown]
  - Myasthenia gravis [Unknown]
